FAERS Safety Report 8374114-8 (Version None)
Quarter: 2012Q2

REPORT INFORMATION
  Report Type: 
  Country: None (occurrence: None)
  Receive Date: 20120521
  Receipt Date: 20120515
  Transmission Date: 20120825
  Serious: Yes (Hospitalization)
  Sender: FDA-Public Use
  Company Number: US-GLAXOSMITHKLINE-A0903036A

PATIENT
  Age: 68 Year
  Sex: Male
  Weight: 116.8 kg

DRUGS (1)
  1. AVANDIA [Suspect]
     Indication: DIABETES MELLITUS
     Dosage: 4MG PER DAY
     Route: 048
     Dates: start: 20050509, end: 20060410

REACTIONS (2)
  - ATRIAL FIBRILLATION [None]
  - CARDIOVASCULAR DISORDER [None]
